FAERS Safety Report 9712523 (Version 1)
Quarter: 2013Q4

REPORT INFORMATION
  Report Type: Spontaneous
  Country: US (occurrence: US)
  Receive Date: 20131126
  Receipt Date: 20131126
  Transmission Date: 20140711
  Serious: No
  Sender: FDA-Public Use
  Company Number: US-BRISTOL-MYERS SQUIBB COMPANY-19199611

PATIENT
  Age: 71 Year
  Sex: Male
  Weight: 77.1 kg

DRUGS (4)
  1. BYDUREON [Suspect]
  2. LEVEMIR [Concomitant]
  3. METFORMIN [Concomitant]
  4. ACTOS [Concomitant]

REACTIONS (4)
  - Nausea [Not Recovered/Not Resolved]
  - Vomiting [Not Recovered/Not Resolved]
  - Hiccups [Not Recovered/Not Resolved]
  - Flatulence [Not Recovered/Not Resolved]
